FAERS Safety Report 8313808-7 (Version None)
Quarter: 2012Q2

REPORT INFORMATION
  Report Type: 
  Country: None (occurrence: None)
  Receive Date: 20120426
  Receipt Date: 20120419
  Transmission Date: 20120825
  Serious: Yes (Hospitalization)
  Sender: FDA-Public Use
  Company Number: IT-BRISTOL-MYERS SQUIBB COMPANY-16506479

PATIENT
  Age: 94 Year
  Sex: Female

DRUGS (7)
  1. IRBESARTAN [Suspect]
     Indication: HYPERTENSION
     Dosage: 1 DF= 1 DOSAGE UNIT/DIE REDUCED TO 1/2 DOSAGE UNIT
     Route: 048
     Dates: start: 20120403, end: 20120403
  2. ROCALTROL [Suspect]
     Indication: HYPOCALCAEMIA
     Dosage: 1 DF= 1 DOSAGE UNIT / DIE
     Route: 048
     Dates: start: 20120203, end: 20120403
  3. NORVASC [Concomitant]
  4. LASIX [Concomitant]
  5. TICLID [Concomitant]
     Dosage: FORM: FILM COVERED TAB
  6. ARANESP [Concomitant]
  7. OMEPRAZOLE [Concomitant]

REACTIONS (3)
  - RENAL FAILURE [None]
  - OLIGURIA [None]
  - HYPERCALCAEMIA [None]
